FAERS Safety Report 6231774-5 (Version None)
Quarter: 2009Q2

REPORT INFORMATION
  Report Type: 
  Country: None (occurrence: None)
  Receive Date: 20090616
  Receipt Date: 20090604
  Transmission Date: 20091009
  Serious: Yes (Other)
  Sender: FDA-Public Use
  Company Number: PHHY2009BR22005

PATIENT
  Age: 25 Year
  Sex: Male
  Weight: 59 kg

DRUGS (1)
  1. GENTEAL (NVO) [Suspect]
     Indication: EYE IRRITATION
     Dosage: 1 DRP, TID
     Dates: start: 20090603

REACTIONS (5)
  - EYE PAIN [None]
  - EYE SWELLING [None]
  - FOREIGN BODY SENSATION IN EYES [None]
  - OCULAR HYPERAEMIA [None]
  - VISUAL IMPAIRMENT [None]
